FAERS Safety Report 7886755-2 (Version None)
Quarter: 2011Q4

REPORT INFORMATION
  Report Type: 
  Country: None (occurrence: None)
  Receive Date: 20111102
  Receipt Date: 20111020
  Transmission Date: 20120403
  Serious: Yes (Other)
  Sender: FDA-Public Use
  Company Number: US-ELI_LILLY_AND_COMPANY-US201108008551

PATIENT
  Sex: Female

DRUGS (3)
  1. FORTEO [Suspect]
     Dosage: 20 UG, QD
     Route: 065
     Dates: end: 20110701
  2. FORTEO [Suspect]
     Dosage: 20 UG, QD
     Dates: start: 20110701
  3. FORTEO [Suspect]
     Indication: OSTEOPOROSIS
     Dosage: 20 UG, QD
     Route: 065
     Dates: start: 20110701

REACTIONS (5)
  - MALAISE [None]
  - NAUSEA [None]
  - FATIGUE [None]
  - WEIGHT DECREASED [None]
  - FEEDING DISORDER [None]
